FAERS Safety Report 20772767 (Version 1)
Quarter: 2022Q2

REPORT INFORMATION
  Report Type: Other
  Country: ES (occurrence: ES)
  Receive Date: 20220502
  Receipt Date: 20220502
  Transmission Date: 20220721
  Serious: Yes (Hospitalization)
  Sender: FDA-Public Use
  Company Number: ES-PFM-2022-03026

PATIENT
  Age: 37 Year
  Sex: Female

DRUGS (9)
  1. ISOTRETINOIN [Suspect]
     Active Substance: ISOTRETINOIN
     Indication: Rosai-Dorfman syndrome
     Dosage: UNK
     Route: 065
  2. ISOTRETINOIN [Suspect]
     Active Substance: ISOTRETINOIN
     Indication: Off label use
  3. COBIMETINIB [Suspect]
     Active Substance: COBIMETINIB
     Indication: Rosai-Dorfman syndrome
     Dosage: 40 MG/DAILY, FOR THE FIRST 21 DAYS OF A 28-DAY CYCLE
     Route: 065
  4. TACROLIMUS [Suspect]
     Active Substance: TACROLIMUS
     Indication: Rosai-Dorfman syndrome
     Dosage: UNK
     Route: 061
  5. TACROLIMUS [Suspect]
     Active Substance: TACROLIMUS
     Indication: Off label use
  6. DOXYCYCLINE [Suspect]
     Active Substance: DOXYCYCLINE
     Indication: Off label use
     Dosage: UNK
     Route: 048
  7. DOXYCYCLINE [Suspect]
     Active Substance: DOXYCYCLINE
     Indication: Rosai-Dorfman syndrome
  8. RIFAMPIN [Suspect]
     Active Substance: RIFAMPIN
     Indication: Rosai-Dorfman syndrome
     Dosage: UNK
     Route: 065
  9. ADALIMUMAB [Suspect]
     Active Substance: ADALIMUMAB
     Indication: Rosai-Dorfman syndrome
     Route: 065

REACTIONS (4)
  - Condition aggravated [Unknown]
  - Off label use [Unknown]
  - Disease progression [Unknown]
  - Drug ineffective [Unknown]
